FAERS Safety Report 24217500 (Version 2)
Quarter: 2024Q4

REPORT INFORMATION
  Report Type: Report from Study
  Country: IN (occurrence: IN)
  Receive Date: 20240816
  Receipt Date: 20241126
  Transmission Date: 20250115
  Serious: Yes (Other)
  Sender: ROCHE
  Company Number: IN-ROCHE-3347489

PATIENT
  Age: 64 Year
  Sex: Male
  Weight: 75.3 kg

DRUGS (2)
  1. TECENTRIQ [Suspect]
     Active Substance: ATEZOLIZUMAB
     Indication: Non-small cell lung cancer
     Route: 042
     Dates: start: 20230125, end: 20240426
  2. TECENTRIQ [Suspect]
     Active Substance: ATEZOLIZUMAB
     Route: 042

REACTIONS (4)
  - Off label use [Unknown]
  - Metastases to bone [Unknown]
  - Hypermetabolism [Unknown]
  - Hypotension [Unknown]
